FAERS Safety Report 11219265 (Version 1)
Quarter: 2015Q2

REPORT INFORMATION
  Report Type: Spontaneous
  Country: US (occurrence: None)
  Receive Date: 20150624
  Receipt Date: 20150624
  Transmission Date: 20150821
  Serious: No
  Sender: FDA-Public Use
  Company Number: None

PATIENT
  Age: 78 Year
  Sex: Female
  Weight: 67.13 kg

DRUGS (8)
  1. PRAVASTATIN [Concomitant]
     Active Substance: PRAVASTATIN\PRAVASTATIN SODIUM
  2. MULTAQ [Concomitant]
     Active Substance: DRONEDARONE
  3. PROTONIX [Concomitant]
     Active Substance: PANTOPRAZOLE SODIUM
  4. CARDIZEN [Concomitant]
  5. IPRATROPIUM BROMIDE ROXANNE LABORATORIES [Suspect]
     Active Substance: IPRATROPIUM BROMIDE
     Indication: EAR DISORDER
     Dates: start: 20150609, end: 20150610
  6. XARELLTO [Concomitant]
  7. IPRATROPIUM BROMIDE ROXANNE LABORATORIES [Suspect]
     Active Substance: IPRATROPIUM BROMIDE
     Indication: DRY THROAT
     Dates: start: 20150609, end: 20150610
  8. SINGULAIR [Concomitant]
     Active Substance: MONTELUKAST SODIUM

REACTIONS (4)
  - Dysstasia [None]
  - Dizziness [None]
  - Gait disturbance [None]
  - Asthenia [None]
